FAERS Safety Report 4773036-9 (Version None)
Quarter: 2005Q3

REPORT INFORMATION
  Report Type: 
  Country: None (occurrence: None)
  Receive Date: 20050919
  Receipt Date: 20050818
  Transmission Date: 20060218
  Serious: Yes (Other)
  Sender: FDA-Public Use
  Company Number: GB-GLAXOSMITHKLINE-B0391322A

PATIENT
  Age: 41 Year
  Sex: Female

DRUGS (5)
  1. PIRITON [Suspect]
     Indication: PRURITUS ALLERGIC
     Route: 048
     Dates: start: 20050817, end: 20050818
  2. MORPHINE [Concomitant]
     Indication: PROCEDURAL PAIN
     Dosage: 1MG AS REQUIRED
     Route: 042
     Dates: start: 20050817, end: 20050818
  3. PARACETAMOL [Concomitant]
     Indication: PROCEDURAL PAIN
     Dosage: 1G FOUR TIMES PER DAY
     Route: 048
     Dates: start: 20050817
  4. DICLOFENAC [Concomitant]
     Indication: PROCEDURAL PAIN
     Dosage: 50MG THREE TIMES PER DAY
     Route: 048
     Dates: start: 20050817
  5. ENOXAPARIN SODIUM [Concomitant]
     Indication: DEEP VEIN THROMBOSIS
     Dosage: 20MG PER DAY
     Route: 058
     Dates: start: 20050817

REACTIONS (4)
  - EYELID DISORDER [None]
  - LOCKED-IN SYNDROME [None]
  - PARALYSIS [None]
  - SPEECH DISORDER [None]
